FAERS Safety Report 7331738-4 (Version None)
Quarter: 2011Q1

REPORT INFORMATION
  Report Type: 
  Country: None (occurrence: None)
  Receive Date: 20110304
  Receipt Date: 20110217
  Transmission Date: 20110831
  Serious: Yes (Hospitalization)
  Sender: FDA-Public Use
  Company Number: PHHY2010US87697

PATIENT
  Sex: Male

DRUGS (8)
  1. INDORAMIN [Concomitant]
     Indication: MYELODYSPLASTIC SYNDROME
     Dosage: 150 MG, UNK
     Dates: start: 20090713
  2. ZOFRAN [Concomitant]
     Indication: NAUSEA
     Dosage: 8 MG, UNK
     Route: 048
     Dates: start: 20090702
  3. EXJADE [Suspect]
     Indication: HAEMATOPOIETIC NEOPLASM
     Dosage: 500 MG, QD
     Route: 048
  4. ATIVAN [Concomitant]
     Indication: NAUSEA
     Dosage: 0.5 MG, UNK
     Dates: start: 20090712
  5. EXJADE [Suspect]
     Dosage: 500 MG, TID
     Route: 048
  6. COMPAZINE [Concomitant]
     Indication: NAUSEA
     Dosage: 10 MG, UNK
     Dates: start: 20090712
  7. VITAMIN D [Concomitant]
     Dosage: 1000 U, BID
     Route: 048
     Dates: start: 20100504
  8. VIAGRA [Concomitant]
     Indication: ERECTILE DYSFUNCTION
     Dosage: 25 MG, UNK
     Route: 048
     Dates: start: 20100722

REACTIONS (1)
  - NO ADVERSE EVENT [None]
